FAERS Safety Report 5393144-1 (Version None)
Quarter: 2007Q3

REPORT INFORMATION
  Report Type: 
  Country: None (occurrence: None)
  Receive Date: 20070718
  Receipt Date: 20061209
  Transmission Date: 20080115
  Serious: Yes (Other)
  Sender: FDA-Public Use
  Company Number: 2006121982

PATIENT
  Age: 84 Year
  Sex: Female

DRUGS (7)
  1. CELEBREX [Suspect]
     Indication: BURSITIS
     Dosage: 400 MG (200 MG,2 IN 1 D)
     Dates: start: 20060807, end: 20060811
  2. WARFARIN SODIUM [Suspect]
     Dosage: 2.5 MG
  3. LANOXIN [Concomitant]
  4. FUROSEMIDE [Concomitant]
  5. POTASSIUM (POTASSIUM) [Concomitant]
  6. ISOSORBIDE MONONITRATE [Concomitant]
  7. DOXAZOSIN (DOXAZOSIN) [Concomitant]

REACTIONS (1)
  - HAEMORRHAGE URINARY TRACT [None]
